FAERS Safety Report 7377878-5 (Version None)
Quarter: 2011Q1

REPORT INFORMATION
  Report Type: 
  Country: None (occurrence: None)
  Receive Date: 20110328
  Receipt Date: 20110317
  Transmission Date: 20110831
  Serious: Yes (Hospitalization)
  Sender: FDA-Public Use
  Company Number: CH-NOVOPROD-325163

PATIENT
  Age: 71 Year
  Sex: Female

DRUGS (7)
  1. ELTROXIN [Concomitant]
  2. PANTOZOL                           /01263202/ [Concomitant]
  3. PLAVIX [Concomitant]
     Dates: end: 20110301
  4. VICTOZA [Suspect]
     Indication: TYPE 2 DIABETES MELLITUS
     Dosage: 1.2 MG, QD
     Route: 058
     Dates: end: 20110301
  5. DIAMICRON [Concomitant]
  6. METFORMIN [Concomitant]
  7. TORASEM [Concomitant]

REACTIONS (1)
  - ANAEMIA HAEMOLYTIC AUTOIMMUNE [None]
